FAERS Safety Report 6699387-9 (Version None)
Quarter: 2010Q2

REPORT INFORMATION
  Report Type: 
  Country: None (occurrence: None)
  Receive Date: 20100427
  Receipt Date: 20100421
  Transmission Date: 20101027
  Serious: Yes (Hospitalization)
  Sender: FDA-Public Use
  Company Number: RO-ABBOTT-10P-135-0640173-00

PATIENT
  Sex: Female
  Weight: 82 kg

DRUGS (1)
  1. HUMIRA [Suspect]
     Indication: RHEUMATOID ARTHRITIS
     Route: 058
     Dates: start: 20091009, end: 20100119

REACTIONS (1)
  - ECZEMA [None]
